FAERS Safety Report 12046123 (Version 2)
Quarter: 2024Q3

REPORT INFORMATION
  Report Type: Spontaneous
  Country: JP (occurrence: JP)
  Receive Date: 20160209
  Receipt Date: 20240909
  Transmission Date: 20241017
  Serious: Yes (Life-Threatening, Hospitalization, Other)
  Sender: MERCK
  Company Number: JP-009507513-1507JPN008873

PATIENT
  Age: 63 Year
  Sex: Female

DRUGS (21)
  1. EMEND [Interacting]
     Active Substance: APREPITANT
     Indication: Prophylaxis of nausea and vomiting
     Dosage: 80 MG, QD
     Route: 048
     Dates: start: 20140701, end: 20140701
  2. EMEND [Interacting]
     Active Substance: APREPITANT
     Dosage: 80 MG, QD
     Route: 048
     Dates: start: 20150306, end: 20150306
  3. EMEND [Interacting]
     Active Substance: APREPITANT
     Indication: Prophylaxis of nausea and vomiting
     Dosage: 125 MG, QD
     Route: 048
     Dates: start: 20140630, end: 20140630
  4. EMEND [Interacting]
     Active Substance: APREPITANT
     Dosage: 125 MG, QD
     Route: 048
     Dates: start: 20150305, end: 20150305
  5. CISPLATIN [Suspect]
     Active Substance: CISPLATIN
     Indication: Ovarian germ cell embryonal carcinoma stage III
     Dosage: 80 UNK, QD
     Route: 041
     Dates: start: 201302, end: 2013
  6. CISPLATIN [Suspect]
     Active Substance: CISPLATIN
     Dosage: 80 UNK, QD
     Route: 041
     Dates: start: 2013, end: 2013
  7. CISPLATIN [Suspect]
     Active Substance: CISPLATIN
     Dosage: 80 UNK, QD
     Route: 041
     Dates: start: 2013, end: 2013
  8. CISPLATIN [Suspect]
     Active Substance: CISPLATIN
     Dosage: 80 UNK, QD
     Route: 041
     Dates: start: 2013, end: 201305
  9. CISPLATIN [Suspect]
     Active Substance: CISPLATIN
     Dosage: 80 MG, QD
     Route: 041
     Dates: start: 201406, end: 20150315
  10. IRINOTECAN HYDROCHLORIDE [Suspect]
     Active Substance: IRINOTECAN HYDROCHLORIDE
     Indication: Ovarian clear cell carcinoma
     Dosage: 80 MG, QD
     Route: 041
     Dates: start: 201302, end: 2013
  11. IRINOTECAN HYDROCHLORIDE [Suspect]
     Active Substance: IRINOTECAN HYDROCHLORIDE
     Dosage: 80 MG, QD
     Route: 041
     Dates: start: 2013, end: 2013
  12. IRINOTECAN HYDROCHLORIDE [Suspect]
     Active Substance: IRINOTECAN HYDROCHLORIDE
     Dosage: 80 MG, QD
     Route: 041
     Dates: start: 2013, end: 2013
  13. IRINOTECAN HYDROCHLORIDE [Suspect]
     Active Substance: IRINOTECAN HYDROCHLORIDE
     Dosage: 80 MG, QD
     Route: 041
     Dates: start: 2013, end: 201305
  14. IRINOTECAN HYDROCHLORIDE [Suspect]
     Active Substance: IRINOTECAN HYDROCHLORIDE
     Dosage: 80 MG, QD
     Route: 041
     Dates: start: 201406, end: 20150305
  15. WARFARIN [Interacting]
     Active Substance: WARFARIN
     Indication: Venous thrombosis
     Dosage: 1 MG, QD
     Route: 048
     Dates: start: 20140626, end: 20140917
  16. LOXOPROFEN SODIUM [Concomitant]
     Active Substance: LOXOPROFEN SODIUM
     Dosage: UNK
     Dates: start: 20140426, end: 20150515
  17. FAMOTIDINE [Concomitant]
     Active Substance: FAMOTIDINE
     Dosage: UNK
     Dates: start: 20140903, end: 20150917
  18. EDOXABAN TOSYLATE [Concomitant]
     Active Substance: EDOXABAN TOSYLATE
     Dosage: UNK
     Dates: start: 20141007, end: 20150924
  19. PALONOSETRON HYDROCHLORIDE [Concomitant]
     Active Substance: PALONOSETRON HYDROCHLORIDE
     Dosage: UNK
     Dates: start: 2014
  20. NAUZELIN [Concomitant]
     Active Substance: DOMPERIDONE
     Dosage: UNK
  21. DECADRON [Concomitant]
     Active Substance: DEXAMETHASONE
     Dosage: UNK
     Dates: start: 20140701, end: 20150316

REACTIONS (4)
  - Pulmonary embolism [Recovered/Resolved]
  - Drug interaction [Unknown]
  - Prothrombin time ratio abnormal [Unknown]
  - Venous thrombosis limb [Unknown]

NARRATIVE: CASE EVENT DATE: 20141014
